FAERS Safety Report 13500135 (Version 4)
Quarter: 2017Q2

REPORT INFORMATION
  Report Type: Spontaneous
  Country: PL (occurrence: PL)
  Receive Date: 20170501
  Receipt Date: 20170626
  Transmission Date: 20170830
  Serious: Yes (Life-Threatening, Other)
  Sender: FDA-Public Use
  Company Number: PL-TEVA-763816ISR

PATIENT
  Age: 69 Year
  Sex: Female

DRUGS (6)
  1. PACLITAXEL. [Suspect]
     Active Substance: PACLITAXEL
     Indication: ENDOMETRIAL CANCER METASTATIC
     Dosage: 21-DAY CYCLES, 4 CYCLES WAS ADMINISTERED
     Route: 065
  2. ACENOCUMAROLE [Concomitant]
  3. FENTANYL. [Concomitant]
     Active Substance: FENTANYL
  4. CARBOPLATIN. [Suspect]
     Active Substance: CARBOPLATIN
     Indication: ENDOMETRIAL CANCER METASTATIC
     Dosage: 21-DAY CYCLES, 4 CYCLES WAS ADMINISTERED
     Route: 065
  5. MORPHINE [Concomitant]
     Active Substance: MORPHINE
  6. ENOXAPARIN [Concomitant]
     Active Substance: ENOXAPARIN

REACTIONS (3)
  - Thrombocytopenia [Not Recovered/Not Resolved]
  - Polyneuropathy [Not Recovered/Not Resolved]
  - Haematotoxicity [Not Recovered/Not Resolved]
